FAERS Safety Report 4661520-8 (Version None)
Quarter: 2005Q2

REPORT INFORMATION
  Report Type: 
  Country: None (occurrence: None)
  Receive Date: 20050512
  Receipt Date: 20050512
  Transmission Date: 20051028
  Serious: Yes (Life-Threatening)
  Sender: FDA-Public Use
  Company Number: None

PATIENT
  Age: 57 Year
  Sex: Male

DRUGS (9)
  1. HYDROCORTISONE [Suspect]
     Indication: ADRENAL INSUFFICIENCY
     Dosage: 20 MG PO BID
     Route: 048
     Dates: start: 20050318, end: 20050324
  2. CEFTAZIDIME [Concomitant]
  3. METRONIDAZOLE [Concomitant]
  4. CALCIUM GLUCONATE [Concomitant]
  5. RISPERDAL [Concomitant]
  6. LACTULOSE [Concomitant]
  7. FOLATE [Concomitant]
  8. BACTRIM DS [Concomitant]
  9. HYDROCORTISONE [Concomitant]

REACTIONS (2)
  - BLOOD GLUCOSE INCREASED [None]
  - TREATMENT NONCOMPLIANCE [None]
